FAERS Safety Report 9718776 (Version 2)
Quarter: 2014Q1

REPORT INFORMATION
  Report Type: Spontaneous
  Country: US (occurrence: US)
  Receive Date: 20131127
  Receipt Date: 20140208
  Transmission Date: 20141002
  Serious: No
  Sender: FDA-Public Use
  Company Number: US-009507513-1311USA008626

PATIENT
  Age: 77 Year
  Sex: Female
  Weight: 89.8 kg

DRUGS (11)
  1. OXYTROL FOR WOMEN [Suspect]
     Indication: URINARY INCONTINENCE
     Dosage: UNK, Q4D
     Route: 062
     Dates: start: 20131006, end: 20131106
  2. GLIMEPRID [Concomitant]
     Indication: DIABETES MELLITUS
     Dosage: UNK, UNKNOWN
  3. OMEPRAZOLE [Concomitant]
     Indication: GASTROOESOPHAGEAL REFLUX DISEASE
     Dosage: UNK, UNKNOWN
  4. HYDROCHLOROTHIAZIDE (+) TRIAMTERENE [Concomitant]
     Indication: PRODUCT USED FOR UNKNOWN INDICATION
     Dosage: UNK, UNKNOWN
  5. LISINOPRIL [Concomitant]
     Indication: ARTERIAL OCCLUSIVE DISEASE
     Dosage: UNK, UNKNOWN
  6. ATENOLOL [Concomitant]
     Indication: BLOOD PRESSURE
     Dosage: UNK, UNKNOWN
  7. L-THYROXIN [Concomitant]
     Indication: THYROID DISORDER
     Dosage: UNK, UNKNOWN
  8. PRISTIQ [Concomitant]
     Indication: DEPRESSION
     Dosage: UNK, UNKNOWN
  9. CRESTOR [Concomitant]
     Indication: BLOOD CHOLESTEROL
     Dosage: UNK, UNKNOWN
  10. VSL NO 3 [Concomitant]
     Indication: COLITIS
     Dosage: UNK, UNKNOWN
  11. SULFASALAZINE [Concomitant]
     Indication: COLITIS
     Dosage: UNK, UNKNOWN

REACTIONS (1)
  - Drug effect decreased [Unknown]
